FAERS Safety Report 9499764 (Version 4)
Quarter: 2014Q1

REPORT INFORMATION
  Report Type: Spontaneous
  Country: DE (occurrence: DE)
  Receive Date: 20130905
  Receipt Date: 20140116
  Transmission Date: 20141002
  Serious: Yes (Hospitalization, Other)
  Sender: FDA-Public Use
  Company Number: DE-JNJFOC-20130901081

PATIENT
  Age: 70 Year
  Sex: Female

DRUGS (17)
  1. XARELTO [Suspect]
     Indication: THROMBOSIS PROPHYLAXIS
     Route: 048
     Dates: start: 20130412, end: 20130430
  2. XARELTO [Suspect]
     Indication: THROMBOSIS PROPHYLAXIS
     Route: 048
     Dates: start: 20130322, end: 20130412
  3. XARELTO [Suspect]
     Indication: DEEP VEIN THROMBOSIS
     Route: 048
     Dates: start: 20130412, end: 20130430
  4. XARELTO [Suspect]
     Indication: DEEP VEIN THROMBOSIS
     Route: 048
     Dates: start: 20130322, end: 20130412
  5. DIOVAN [Concomitant]
     Route: 065
  6. BISO-HENNIG [Concomitant]
     Route: 065
  7. L-THYROXIN [Concomitant]
     Route: 065
  8. OMEGA 3 ACID ETHYL ESTERS [Concomitant]
     Route: 065
  9. TEBONIN [Concomitant]
     Route: 065
  10. VITAMIN D3 [Concomitant]
     Route: 065
  11. ACTRAPHANE [Concomitant]
     Route: 065
  12. TORASEMID [Concomitant]
     Route: 065
  13. AGOPTON [Concomitant]
     Route: 065
  14. ACTRAPID [Concomitant]
     Route: 065
  15. FERROUS GLUCONATE [Concomitant]
     Route: 065
  16. CRATAEGUTT [Concomitant]
     Route: 065
  17. ASPIRIN [Concomitant]
     Route: 065

REACTIONS (12)
  - Haemorrhagic diathesis [Unknown]
  - Renal failure [Unknown]
  - Glomerular filtration rate decreased [Recovering/Resolving]
  - Nephrogenic anaemia [Unknown]
  - Pharyngeal haemorrhage [Unknown]
  - Nephrogenic anaemia [Unknown]
  - Haemoglobin decreased [Unknown]
  - Fatigue [Unknown]
  - Gingival bleeding [Unknown]
  - Diarrhoea [Unknown]
  - Nausea [Unknown]
  - Blood creatinine increased [Unknown]
